FAERS Safety Report 23375846 (Version 1)
Quarter: 2024Q1

REPORT INFORMATION
  Report Type: Report from Study
  Country: US (occurrence: US)
  Receive Date: 20240108
  Receipt Date: 20240108
  Transmission Date: 20240410
  Serious: Yes (Other)
  Sender: FDA-Public Use
  Company Number: US-ABBVIE-5571365

PATIENT
  Sex: Female

DRUGS (1)
  1. HUMIRA [Suspect]
     Active Substance: ADALIMUMAB
     Indication: Hidradenitis
     Dosage: FORM STRENGTH UNITS: 40 MILLIGRAM
     Route: 058

REACTIONS (3)
  - Varicose vein [Recovering/Resolving]
  - Peripheral swelling [Unknown]
  - Pain in extremity [Recovering/Resolving]
